FAERS Safety Report 9994932 (Version 2)
Quarter: 2014Q2

REPORT INFORMATION
  Report Type: Spontaneous
  Country: US (occurrence: None)
  Receive Date: 20140306
  Receipt Date: 20140422
  Transmission Date: 20141212
  Serious: Yes (Hospitalization)
  Sender: FDA-Public Use
  Company Number: 20140095

PATIENT
  Age: 73 Year
  Sex: Female
  Weight: 50.35 kg

DRUGS (16)
  1. INJECTAFER (FERRIC CARBOXYMALTOSE INJECTION) [Suspect]
     Dosage: 2-7 DAYS APART INTRACAVERNOUS
     Dates: start: 20140206, end: 20140218
  2. LASIX [Concomitant]
  3. LEVSIN [Concomitant]
  4. LIDOCAINE [Concomitant]
  5. LIPITOR [Concomitant]
  6. NASONEX [Concomitant]
  7. NEURONTIN [Concomitant]
  8. PERCOCET [Concomitant]
  9. VERAMYST [Concomitant]
  10. XANAX [Concomitant]
  11. ZOFRAN [Concomitant]
  12. MECLIZINE [Concomitant]
  13. LISINOPRIL [Concomitant]
  14. TEMAZEPAM [Concomitant]
  15. POTASSIUM CHLORIDE [Concomitant]
  16. CILOSTAZOL [Concomitant]

REACTIONS (22)
  - Fall [None]
  - Mental status changes [None]
  - Lethargy [None]
  - Blood pressure decreased [None]
  - Confusional state [None]
  - Blood pH decreased [None]
  - Blood urea increased [None]
  - Blood glucose increased [None]
  - Aspartate aminotransferase increased [None]
  - Alanine aminotransferase increased [None]
  - Blood creatine phosphokinase increased [None]
  - Haemoglobin decreased [None]
  - Drug screen positive [None]
  - Blood urine present [None]
  - Urosepsis [None]
  - Urinary tract infection [None]
  - Renal failure acute [None]
  - Rhabdomyolysis [None]
  - Metabolic acidosis [None]
  - Colitis [None]
  - Colitis [None]
  - Dehydration [None]
